FAERS Safety Report 14991802 (Version 1)
Quarter: 2018Q2

REPORT INFORMATION
  Report Type: Spontaneous
  Country: US (occurrence: US)
  Receive Date: 20180608
  Receipt Date: 20180608
  Transmission Date: 20180711
  Serious: No
  Sender: FDA-Public Use
  Company Number: US-009507513-1806USA002404

PATIENT
  Age: 16 Year
  Sex: Female
  Weight: 50.79 kg

DRUGS (1)
  1. NEXPLANON [Suspect]
     Active Substance: ETONOGESTREL
     Indication: CONTRACEPTION
     Dosage: 3 YEAR IMPLANT, INSIDE RIGHT ARM
     Route: 059
     Dates: start: 20180104

REACTIONS (6)
  - Adverse event [Unknown]
  - Weight decreased [Unknown]
  - Headache [Unknown]
  - Decreased appetite [Unknown]
  - Nipple exudate bloody [Unknown]
  - Nipple disorder [Unknown]

NARRATIVE: CASE EVENT DATE: 201803
